FAERS Safety Report 4427709-8 (Version None)
Quarter: 2004Q3

REPORT INFORMATION
  Report Type: 
  Country: None (occurrence: None)
  Receive Date: 20040817
  Receipt Date: 20040618
  Transmission Date: 20050211
  Serious: Yes (Other)
  Sender: FDA-Public Use
  Company Number: DE-ROCHE-371674

PATIENT
  Age: 44 Year
  Sex: Male
  Weight: 69 kg

DRUGS (4)
  1. PEGASYS [Suspect]
     Route: 058
     Dates: start: 20040204, end: 20040427
  2. REBETOL [Suspect]
     Route: 048
     Dates: start: 20040204, end: 20040427
  3. CALCIUM ACETATE [Concomitant]
     Route: 048
  4. ERYTHROPOIETIN HUMAN [Concomitant]
     Indication: PROPHYLAXIS
     Dosage: FORMULATION: INJECTABLE.
     Route: 058

REACTIONS (8)
  - ACCIDENTAL OVERDOSE [None]
  - CATHETER RELATED INFECTION [None]
  - DENTAL CARIES [None]
  - EPISTAXIS [None]
  - JOINT SWELLING [None]
  - ORAL CANDIDIASIS [None]
  - PANCYTOPENIA [None]
  - STAPHYLOCOCCAL INFECTION [None]
